FAERS Safety Report 7734498-8 (Version None)
Quarter: 2011Q3

REPORT INFORMATION
  Report Type: 
  Country: None (occurrence: None)
  Receive Date: 20110907
  Receipt Date: 20110826
  Transmission Date: 20111222
  Serious: Yes (Other)
  Sender: FDA-Public Use
  Company Number: US-GLAXOSMITHKLINE-A0897032A

PATIENT
  Age: 47 Year
  Sex: Male
  Weight: 127.7 kg

DRUGS (3)
  1. AVANDAMET [Suspect]
     Indication: DIABETES MELLITUS
     Route: 048
     Dates: start: 20040501, end: 20050201
  2. AVANDIA [Suspect]
     Indication: TYPE 2 DIABETES MELLITUS
     Dosage: 4MG TWICE PER DAY
     Route: 048
     Dates: start: 20030101, end: 20050425
  3. INSULIN [Concomitant]

REACTIONS (6)
  - HYPOGLYCAEMIA [None]
  - CHEST PAIN [None]
  - HYPERTENSION [None]
  - INJURY [None]
  - DYSPNOEA [None]
  - CARDIOVASCULAR DISORDER [None]
